FAERS Safety Report 16719109 (Version 2)
Quarter: 2019Q3

REPORT INFORMATION
  Report Type: Spontaneous
  Country: ZA (occurrence: ZA)
  Receive Date: 20190820
  Receipt Date: 20190910
  Transmission Date: 20191005
  Serious: Yes (Other)
  Sender: FDA-Public Use
  Company Number: ZA-ASTELLAS-2019US029687

PATIENT
  Age: 34 Year
  Sex: Male

DRUGS (1)
  1. MYCAMINE [Suspect]
     Active Substance: MICAFUNGIN SODIUM
     Indication: ABDOMINAL INFECTION
     Dosage: 100 MG, ONCE DAILY FOR 2 WEEKS
     Route: 042
     Dates: start: 20190626, end: 20190710

REACTIONS (2)
  - Fungal endocarditis [Recovered/Resolved]
  - Blood beta-D-glucan increased [Recovered/Resolved]

NARRATIVE: CASE EVENT DATE: 20190701
